FAERS Safety Report 22218354 (Version 1)
Quarter: 2023Q2

REPORT INFORMATION
  Report Type: Spontaneous
  Country: US (occurrence: None)
  Receive Date: 20230414
  Receipt Date: 20230414
  Transmission Date: 20230722
  Serious: Yes (Disabling, Other)
  Sender: FDA-Public Use
  Company Number: None

PATIENT
  Age: 32 Year
  Sex: Female
  Weight: 66.6 kg

DRUGS (3)
  1. MIRENA [Suspect]
     Active Substance: LEVONORGESTREL
     Indication: Contraception
     Dates: start: 20200416, end: 20230410
  2. Multi vitamin [Concomitant]
  3. Vitamin D [Concomitant]

REACTIONS (8)
  - Intracranial pressure increased [None]
  - Eye pain [None]
  - Nausea [None]
  - Dizziness [None]
  - Pyrexia [None]
  - Arthritis [None]
  - Spinal cord disorder [None]
  - Heart rate increased [None]

NARRATIVE: CASE EVENT DATE: 20230331
